FAERS Safety Report 22123712 (Version 1)
Quarter: 2023Q1

REPORT INFORMATION
  Report Type: Spontaneous
  Country: JP (occurrence: JP)
  Receive Date: 20230322
  Receipt Date: 20230322
  Transmission Date: 20230418
  Serious: Yes (Other)
  Sender: FDA-Public Use
  Company Number: JP-ASTELLAS-2023JP003520

PATIENT
  Age: 75 Year

DRUGS (2)
  1. PROGRAF [Suspect]
     Active Substance: TACROLIMUS
     Indication: Dermatomyositis
     Dosage: 3 MG/DAY, UNKNOWN FREQ.
     Route: 048
  2. PROGRAF [Suspect]
     Active Substance: TACROLIMUS
     Indication: Interstitial lung disease

REACTIONS (2)
  - Brain injury [Unknown]
  - Pancreatitis [Unknown]

NARRATIVE: CASE EVENT DATE: 20230101
